FAERS Safety Report 8608595 (Version 2)
Quarter: 2012Q4

REPORT INFORMATION
  Report Type: Report from Study
  Country: JP (occurrence: JP)
  Receive Date: 20120611
  Receipt Date: 20120906
  Transmission Date: 20130627
  Serious: Yes (Death)
  Sender: FDA-Public Use
  Company Number: JP-VIIV HEALTHCARE LIMITED-B0804861A

PATIENT
  Age: 55 Year
  Sex: Male

DRUGS (5)
  1. LEXIVA [Suspect]
     Indication: HIV INFECTION
     Dosage: 1400MG Per day
     Route: 048
     Dates: start: 20090205, end: 20111222
  2. EPIVIR [Suspect]
     Indication: HIV INFECTION
     Dosage: 300MG Per day
     Route: 048
     Dates: start: 20060907, end: 20111222
  3. NORVIR [Suspect]
     Indication: HIV INFECTION
     Dosage: 100MG Per day
     Route: 048
     Dates: start: 20060105, end: 20111222
  4. VIREAD [Suspect]
     Indication: HIV INFECTION
     Dosage: 300MG Per day
     Route: 048
     Dates: start: 20060907, end: 20111222
  5. KOGENATE [Concomitant]
     Indication: FACTOR VIII DEFICIENCY
     Dosage: 20000IU In the morning
     Route: 042
     Dates: end: 20111222

REACTIONS (2)
  - Gastrointestinal haemorrhage [Fatal]
  - Small intestine carcinoma [Not Recovered/Not Resolved]
